FAERS Safety Report 5925746-5 (Version None)
Quarter: 2008Q4

REPORT INFORMATION
  Report Type: 
  Country: None (occurrence: None)
  Receive Date: 20081021
  Receipt Date: 20081015
  Transmission Date: 20090506
  Serious: Yes (Life-Threatening, Hospitalization, Congenital Anomaly)
  Sender: FDA-Public Use
  Company Number: FR-ROCHE-591886

PATIENT
  Sex: Female
  Weight: 2.8 kg

DRUGS (5)
  1. VALIUM [Suspect]
     Indication: DRUG USE FOR UNKNOWN INDICATION
     Dosage: TILL 29 WEEKS OF AMENORRHEA
     Route: 062
     Dates: start: 20050927
  2. VALIUM [Suspect]
     Route: 062
     Dates: end: 20060531
  3. NORSET [Suspect]
     Indication: DRUG USE FOR UNKNOWN INDICATION
     Dosage: DOSE: 0 TO 29 WEEKS OF AMMENORRHEA
     Route: 064
     Dates: start: 20050927
  4. NORSET [Suspect]
     Route: 064
     Dates: end: 20080531
  5. METHADONE HCL [Suspect]
     Indication: DRUG USE FOR UNKNOWN INDICATION
     Route: 064
     Dates: start: 20050927, end: 20060531

REACTIONS (5)
  - ATRIAL SEPTAL DEFECT [None]
  - HEART DISEASE CONGENITAL [None]
  - PATENT DUCTUS ARTERIOSUS [None]
  - VENTRICULAR SEPTAL DEFECT [None]
  - WITHDRAWAL SYNDROME [None]
